FAERS Safety Report 4682113-2 (Version None)
Quarter: 2005Q2

REPORT INFORMATION
  Report Type: 
  Country: None (occurrence: None)
  Receive Date: 20050606
  Receipt Date: 20040907
  Transmission Date: 20051028
  Serious: Yes (Life-Threatening, Hospitalization)
  Sender: FDA-Public Use
  Company Number: PHBS2004JP11940

PATIENT
  Age: 28 Year
  Sex: Male
  Weight: 60 kg

DRUGS (12)
  1. SIMULECT [Suspect]
     Indication: RENAL TRANSPLANT
     Dosage: 20 MG, ONCE/SINGLE
     Route: 042
     Dates: start: 20040519, end: 20040519
  2. SIMULECT [Suspect]
     Dosage: 20 MG, ONCE/SINGLE
     Route: 042
     Dates: start: 20040523, end: 20040523
  3. TACROLIMUS [Suspect]
     Indication: RENAL TRANSPLANT
     Dosage: 12 MG/DAY
     Route: 048
     Dates: start: 20040517, end: 20040518
  4. TACROLIMUS [Suspect]
     Dosage: 5 MG/DAY
     Route: 042
     Dates: start: 20040519, end: 20040519
  5. TACROLIMUS [Suspect]
     Dosage: 3 MG/DAY
     Route: 042
     Dates: start: 20040520, end: 20040521
  6. TACROLIMUS [Suspect]
     Dosage: 4 MG/DAY
     Route: 048
     Dates: start: 20040522, end: 20040522
  7. TACROLIMUS [Suspect]
     Dosage: 1.5 MG/DAY
     Route: 042
     Dates: start: 20040523, end: 20040524
  8. MIZORIBINE [Suspect]
     Indication: RENAL TRANSPLANT
     Dosage: 125 MG/DAY
     Route: 048
     Dates: start: 20040517, end: 20040518
  9. MIZORIBINE [Suspect]
     Dosage: 100 MG/DAY
     Route: 048
     Dates: start: 20040521, end: 20040524
  10. SULPERAZON [Suspect]
     Indication: INFECTION PROPHYLAXIS
     Dosage: 1 G/DAY
     Route: 042
     Dates: start: 20040519, end: 20040524
  11. PREDONINE [Concomitant]
     Indication: RENAL TRANSPLANT
     Dosage: 500 MG/DAY
     Route: 042
     Dates: start: 20040519
  12. PREDONINE [Concomitant]
     Dosage: 20 MG/DAY
     Route: 042

REACTIONS (9)
  - CYTOMEGALOVIRUS INFECTION [None]
  - DYSPNOEA [None]
  - HENOCH-SCHONLEIN PURPURA [None]
  - INTERSTITIAL LUNG DISEASE [None]
  - LIVER DISORDER [None]
  - PO2 DECREASED [None]
  - RENAL DISORDER [None]
  - TRANSAMINASES INCREASED [None]
  - WEIGHT INCREASED [None]
